FAERS Safety Report 5296293-1 (Version None)
Quarter: 2007Q2

REPORT INFORMATION
  Report Type: 
  Country: None (occurrence: None)
  Receive Date: 20070413
  Receipt Date: 20070405
  Transmission Date: 20071010
  Serious: Yes (Other)
  Sender: FDA-Public Use
  Company Number: US-JNJFOC-20070401653

PATIENT
  Sex: Female
  Weight: 71.67 kg

DRUGS (3)
  1. TOPAMAX [Suspect]
     Indication: MUSCLE SPASMS
     Route: 048
  2. TOPAMAX [Suspect]
     Indication: MULTIPLE SCLEROSIS
     Route: 048
  3. REBIF [Concomitant]
     Indication: MULTIPLE SCLEROSIS

REACTIONS (8)
  - BLOOD PRESSURE DECREASED [None]
  - DEHYDRATION [None]
  - DYSARTHRIA [None]
  - FEELING HOT [None]
  - LOSS OF CONSCIOUSNESS [None]
  - SOMNOLENCE [None]
  - VERTIGO [None]
  - WEIGHT DECREASED [None]
